FAERS Safety Report 4607532-1 (Version None)
Quarter: 2005Q1

REPORT INFORMATION
  Report Type: 
  Country: None (occurrence: None)
  Receive Date: 20050309
  Receipt Date: 20050303
  Transmission Date: 20050727
  Serious: Yes (Death, Life-Threatening)
  Sender: FDA-Public Use
  Company Number: 2005AP00613

PATIENT
  Age: 85 Year
  Sex: Female

DRUGS (2)
  1. SEROQUEL [Suspect]
     Indication: DELIRIUM
     Dosage: 12.5 MG DAILY PO
     Route: 048
     Dates: start: 20040314, end: 20040301
  2. SEROQUEL [Suspect]
     Indication: DELIRIUM
     Dosage: 12.5 MG DAILY PO
     Route: 048
     Dates: start: 20050120, end: 20050120

REACTIONS (8)
  - ANOREXIA [None]
  - APRAXIA [None]
  - CARDIAC ARREST [None]
  - COGNITIVE DISORDER [None]
  - DEPRESSED LEVEL OF CONSCIOUSNESS [None]
  - HYPOKINESIA [None]
  - HYPOTHERMIA [None]
  - MUSCLE RIGIDITY [None]
